FAERS Safety Report 13499491 (Version 2)
Quarter: 2017Q4

REPORT INFORMATION
  Report Type: Report from Study
  Country: US (occurrence: US)
  Receive Date: 20170501
  Receipt Date: 20171024
  Transmission Date: 20180320
  Serious: Yes (Other)
  Sender: FDA-Public Use
  Company Number: US-BAYER-2017-079647

PATIENT
  Age: 62 Year
  Sex: Female

DRUGS (1)
  1. NEXAVAR [Suspect]
     Active Substance: SORAFENIB
     Indication: THYROID CANCER
     Dosage: 400 MG, BID
     Route: 048

REACTIONS (4)
  - Cellulitis [Not Recovered/Not Resolved]
  - Abscess limb [None]
  - Diarrhoea [Not Recovered/Not Resolved]
  - Skin disorder [None]

NARRATIVE: CASE EVENT DATE: 201704
